FAERS Safety Report 21053069 (Version 1)
Quarter: 2022Q3

REPORT INFORMATION
  Report Type: Spontaneous
  Country: US (occurrence: US)
  Receive Date: 20220707
  Receipt Date: 20220707
  Transmission Date: 20221027
  Serious: No
  Sender: FDA-Public Use
  Company Number: US-TARO PHARMACEUTICALS USA INC.-2021TAR00925

PATIENT

DRUGS (1)
  1. CETIRIZINE HCL [Suspect]
     Active Substance: CETIRIZINE HYDROCHLORIDE
     Indication: Hypersensitivity
     Dosage: 5 MILLILITER, 1 DOSE
     Route: 048
     Dates: start: 20210826, end: 20210826

REACTIONS (2)
  - Abdominal pain upper [Unknown]
  - Product quality issue [Unknown]

NARRATIVE: CASE EVENT DATE: 20210826
